FAERS Safety Report 19172254 (Version 1)
Quarter: 2021Q2

REPORT INFORMATION
  Report Type: Spontaneous
  Country: US (occurrence: US)
  Receive Date: 20210423
  Receipt Date: 20210423
  Transmission Date: 20210717
  Serious: No
  Sender: FDA-Public Use
  Company Number: US-TEVA-2021-US-1902454

PATIENT
  Sex: Female

DRUGS (1)
  1. POTASSIUM CHLORIDE ACTAVIS [Suspect]
     Active Substance: POTASSIUM CHLORIDE
     Dosage: POTASSIUM CHLORIDE EXTENDED?RELEASE CAPSULES
     Route: 065

REACTIONS (2)
  - Faeces discoloured [Unknown]
  - Feeling abnormal [Unknown]
